FAERS Safety Report 8262668-1 (Version None)
Quarter: 2012Q2

REPORT INFORMATION
  Report Type: 
  Country: None (occurrence: None)
  Receive Date: 20120405
  Receipt Date: 20120402
  Transmission Date: 20120825
  Serious: Yes (Other)
  Sender: FDA-Public Use
  Company Number: CH-JNJFOC-20120401592

PATIENT
  Age: 70 Year
  Sex: Male

DRUGS (3)
  1. SULFASALAZINE [Concomitant]
     Indication: ANKYLOSING SPONDYLITIS
     Dates: start: 19990401, end: 20111115
  2. GOLIMUMAB [Suspect]
     Indication: ANKYLOSING SPONDYLITIS
     Route: 058
     Dates: start: 20110908, end: 20111208
  3. METHOTREXATE [Concomitant]
     Indication: ANKYLOSING SPONDYLITIS
     Dates: start: 19990401

REACTIONS (1)
  - PNEUMOCYSTIS JIROVECI PNEUMONIA [None]
